FAERS Safety Report 15262348 (Version 1)
Quarter: 2018Q3

REPORT INFORMATION
  Report Type: Spontaneous
  Country: US (occurrence: US)
  Receive Date: 20180720
  Receipt Date: 20180720
  Transmission Date: 20181010
  Serious: No
  Sender: FDA-Public Use
  Company Number: None

PATIENT
  Age: 32 Month
  Sex: Female
  Weight: 11.7 kg

DRUGS (6)
  1. MIRALAX [Concomitant]
     Active Substance: POLYETHYLENE GLYCOL 3350
  2. MULTIVITAMINS WITH IRON [Concomitant]
     Active Substance: IRON\VITAMINS
  3. FLINT STONES [Concomitant]
  4. EXLAX [Concomitant]
  5. FIBER GUMMIES [Concomitant]
  6. POLYETHYLENE GLYCOL 3350, USP POWDER FOR ORAL SOLUTION [Suspect]
     Active Substance: POLYETHYLENE GLYCOL 3350
     Indication: CONSTIPATION
     Dosage: ?          QUANTITY:4 OUNCE(S);?
     Route: 048
     Dates: start: 20180712, end: 20180720

REACTIONS (7)
  - Anger [None]
  - Crying [None]
  - Anxiety [None]
  - Mood swings [None]
  - Nightmare [None]
  - Aggression [None]
  - Sleep terror [None]

NARRATIVE: CASE EVENT DATE: 20180720
